FAERS Safety Report 22028745 (Version 1)
Quarter: 2023Q1

REPORT INFORMATION
  Report Type: Spontaneous
  Country: US (occurrence: US)
  Receive Date: 20230223
  Receipt Date: 20230223
  Transmission Date: 20230417
  Serious: No
  Sender: FDA-Public Use
  Company Number: US-Cardinal Health 414-NPHS-AE-23-1

PATIENT
  Age: 51 Year
  Sex: Female
  Weight: 63.5 kg

DRUGS (1)
  1. TECHNETIUM TC-99M MEDRONATE KIT [Suspect]
     Active Substance: TECHNETIUM TC-99M MEDRONATE
     Indication: Bone scan
     Route: 042
     Dates: start: 20230123, end: 20230123

REACTIONS (3)
  - Burning sensation [Recovered/Resolved]
  - Erythema [Recovered/Resolved]
  - Off label use [Recovered/Resolved]

NARRATIVE: CASE EVENT DATE: 20230123
